FAERS Safety Report 5113675-9 (Version None)
Quarter: 2006Q3

REPORT INFORMATION
  Report Type: 
  Country: None (occurrence: None)
  Receive Date: 20060921
  Receipt Date: 20060921
  Transmission Date: 20061208
  Serious: Yes (Life-Threatening, Hospitalization)
  Sender: FDA-Public Use
  Company Number: None

PATIENT
  Age: 78 Year
  Sex: Male
  Weight: 75.3 kg

DRUGS (14)
  1. LOPRESSOR [Suspect]
     Indication: HYPERTENSION
     Dosage: 50 MG PO BID
     Route: 048
  2. CLONIDINE [Suspect]
     Dosage: 0.1-0.2 MG PRN
  3. NIFEDIPINE [Concomitant]
  4. LOSARTAN POSTASSIUM [Concomitant]
  5. SIMVASTATIN [Concomitant]
  6. OMEPRAZOLE [Concomitant]
  7. NEPHROCAP [Concomitant]
  8. TEMAZEPAM [Concomitant]
  9. LORAZEPAM [Concomitant]
  10. AGGRENOX [Concomitant]
  11. EPOETIN [Concomitant]
  12. SENOKOT [Concomitant]
  13. SEVERAMER [Concomitant]
  14. DOXERCALCIFEROL [Concomitant]

REACTIONS (2)
  - ATRIOVENTRICULAR BLOCK THIRD DEGREE [None]
  - FALL [None]
